FAERS Safety Report 4379326-6 (Version None)
Quarter: 2004Q2

REPORT INFORMATION
  Report Type: 
  Country: None (occurrence: None)
  Receive Date: 20040610
  Receipt Date: 20040607
  Transmission Date: 20050107
  Serious: Yes (Death, Other)
  Sender: FDA-Public Use
  Company Number: USA-2004-0012627

PATIENT
  Age: 28 Year
  Sex: Male
  Weight: 94.8 kg

DRUGS (3)
  1. OXYCONTIN [Suspect]
     Dosage: 40 MG
  2. ALCOHOL(ETHANOL) [Suspect]
  3. DEXTROMETHORPHAN (DEXTROMETHORPHAN) [Suspect]

REACTIONS (4)
  - ALCOHOL POISONING [None]
  - DRUG ABUSER [None]
  - MULTIPLE DRUG OVERDOSE ACCIDENTAL [None]
  - PULMONARY OEDEMA [None]
